FAERS Safety Report 5934652-1 (Version None)
Quarter: 2008Q4

REPORT INFORMATION
  Report Type: 
  Country: None (occurrence: None)
  Receive Date: 20081029
  Receipt Date: 20081014
  Transmission Date: 20090506
  Serious: Yes (Hospitalization)
  Sender: FDA-Public Use
  Company Number: SG-ABBOTT-08P-141-0484353-00

PATIENT
  Sex: Male
  Weight: 49 kg

DRUGS (10)
  1. RITONAVIR SOFT GELATIN CAPSULES (NOT ADMINISTERED) [Suspect]
     Indication: HIV INFECTION
     Route: 048
  2. KALETRA [Suspect]
     Indication: HIV INFECTION
     Route: 048
     Dates: start: 20060602, end: 20060616
  3. KALETRA [Suspect]
     Route: 048
     Dates: start: 20060622, end: 20080923
  4. TRUVADA [Concomitant]
     Indication: HIV INFECTION
     Route: 048
     Dates: start: 20060602, end: 20060616
  5. TRUVADA [Concomitant]
     Route: 048
     Dates: start: 20060622, end: 20080923
  6. CETRIMIDE [Concomitant]
     Indication: ECZEMA
     Route: 061
     Dates: start: 20080627
  7. CETRIMIDE [Concomitant]
     Indication: SEBORRHOEIC DERMATITIS
  8. BETAMETHASONE [Concomitant]
     Indication: PRURITUS
     Dates: start: 20060630
  9. SOFT SOAP [Concomitant]
     Indication: RASH PAPULAR
     Route: 061
     Dates: start: 20061114
  10. PARA-SELTZER [Concomitant]
     Indication: DRUG USE FOR UNKNOWN INDICATION
     Route: 048
     Dates: start: 20070401

REACTIONS (2)
  - CHEST PAIN [None]
  - ELECTROCARDIOGRAM QT PROLONGED [None]
